FAERS Safety Report 9399866 (Version 2)
Quarter: 2013Q3

REPORT INFORMATION
  Report Type: Report from Study
  Country: CA (occurrence: CA)
  Receive Date: 20130715
  Receipt Date: 20130724
  Transmission Date: 20140515
  Serious: Yes (Death)
  Sender: FDA-Public Use
  Company Number: PHHY2013CA074546

PATIENT
  Age: 53 Year
  Sex: Female

DRUGS (23)
  1. ACLASTA [Suspect]
     Indication: OSTEOPOROTIC FRACTURE
     Dosage: UKN
     Route: 042
     Dates: start: 20101010
  2. ACLASTA [Suspect]
     Dosage: UNK UKN, UNK
     Route: 042
     Dates: start: 2012
  3. ACETAMINOPHEN [Concomitant]
     Dosage: 500 MG, BID
     Route: 048
  4. CALCITONIN [Concomitant]
     Dosage: UNK, QD
  5. CALCIUM CARBONATE [Concomitant]
     Dosage: UNK UKN, UNK
  6. DOMPERIDONE [Concomitant]
     Dosage: 10 UKN, BID
     Route: 048
  7. LAMOTRIGINE [Concomitant]
     Dosage: 100 UKN, BID
  8. PAXEL [Concomitant]
     Dosage: 30 UKN, UNK
  9. RANITIDINE [Concomitant]
     Dosage: 150 UKN, BID
  10. TETRABENAZINE [Concomitant]
     Dosage: 25 UKN, TID
     Route: 048
  11. VIT D [Concomitant]
     Dosage: 1000 IU, QD
     Route: 048
  12. ACIDOPHILUS [Concomitant]
     Dosage: UNK UKN, UNK
  13. SENNOSIDE [Concomitant]
     Dosage: 12 MG, QD
     Route: 048
  14. CYCLOBENZAPRINE [Concomitant]
     Dosage: 10 UKN, PRN
     Route: 048
  15. DIMENHYDRINATE [Concomitant]
     Dosage: 50 UKN, PRN
  16. GASTROLYTE [Concomitant]
     Dosage: UNK UKN, PRN
     Route: 048
  17. HYDROMORPHONE [Concomitant]
     Dosage: UNK UKN, PRN
  18. LACTULOSE [Concomitant]
     Dosage: UNK UKN, PRN
  19. SENNOSIDES A+B [Concomitant]
     Dosage: UNK UKN, PRN
  20. ECTOSONE [Concomitant]
     Dosage: UNK UKN, PRN
  21. CLOTRIMAZOLE [Concomitant]
     Dosage: UNK UKN, PRN
  22. SUCRALFATE [Concomitant]
     Dosage: UNK UKN, PRN
  23. COAL TAR [Concomitant]
     Dosage: PRN

REACTIONS (1)
  - Death [Fatal]
